FAERS Safety Report 7425003-4 (Version None)
Quarter: 2011Q2

REPORT INFORMATION
  Report Type: 
  Country: None (occurrence: None)
  Receive Date: 20110419
  Receipt Date: 20110407
  Transmission Date: 20111010
  Serious: Yes (Other)
  Sender: FDA-Public Use
  Company Number: SE-BAYER-2011-030352

PATIENT
  Age: 34 Year
  Sex: Female

DRUGS (2)
  1. MIRENA [Suspect]
     Indication: PRODUCT USED FOR UNKNOWN INDICATION
     Dosage: 20 MCG/24HR, CONT
     Route: 015
     Dates: start: 20020901, end: 20060101
  2. MIRENA [Suspect]
     Dosage: 20 MCG/24HR, CONT
     Route: 015
     Dates: start: 20100501, end: 20110303

REACTIONS (5)
  - ABORTION SPONTANEOUS [None]
  - DEVICE EXPULSION [None]
  - BREAST CANCER FEMALE [None]
  - CERVICAL CONISATION [None]
  - PREGNANCY WITH CONTRACEPTIVE DEVICE [None]
